FAERS Safety Report 7440299-0 (Version None)
Quarter: 2011Q2

REPORT INFORMATION
  Report Type: 
  Country: None (occurrence: None)
  Receive Date: 20110427
  Receipt Date: 20110419
  Transmission Date: 20111010
  Serious: Yes (Other)
  Sender: FDA-Public Use
  Company Number: PHHY2011JP31202

PATIENT
  Age: 80 Year
  Sex: Female

DRUGS (7)
  1. RIFAMPICIN [Suspect]
     Indication: TUBERCULOSIS
     Dosage: 450 MG, DAILY
     Route: 048
     Dates: start: 20110303, end: 20110316
  2. ISONIAZID [Concomitant]
     Indication: TUBERCULOSIS
     Dosage: UNK UKN, UNK
     Route: 048
     Dates: start: 20110303, end: 20110316
  3. ESANBUTOL [Concomitant]
     Dosage: UNK
     Route: 048
     Dates: start: 20110324
  4. ESANBUTOL [Concomitant]
     Indication: TUBERCULOSIS
     Dosage: UNK UKN, UNK
     Route: 048
     Dates: start: 20110303, end: 20110316
  5. PYDOXAL [Concomitant]
     Dosage: UNK
     Route: 048
     Dates: start: 20110324
  6. PYDOXAL [Concomitant]
     Dosage: UNK UKN, UNK
     Route: 048
     Dates: start: 20110303, end: 20110316
  7. ISONIAZID [Concomitant]
     Dosage: UNK
     Route: 048
     Dates: start: 20110324

REACTIONS (5)
  - BLOOD BILIRUBIN INCREASED [None]
  - SPEECH DISORDER [None]
  - ABNORMAL BEHAVIOUR [None]
  - ASPARTATE AMINOTRANSFERASE INCREASED [None]
  - HEPATIC FUNCTION ABNORMAL [None]
